FAERS Safety Report 21176949 (Version 2)
Quarter: 2022Q4

REPORT INFORMATION
  Report Type: Spontaneous
  Country: US (occurrence: US)
  Receive Date: 20220805
  Receipt Date: 20221115
  Transmission Date: 20230113
  Serious: No
  Sender: FDA-Public Use
  Company Number: US-ALLERGAN-2217676US

PATIENT
  Sex: Male
  Weight: 90 kg

DRUGS (1)
  1. VUITY [Suspect]
     Active Substance: PILOCARPINE HYDROCHLORIDE
     Indication: Presbyopia
     Dosage: 2 GTT, QD

REACTIONS (3)
  - Balance disorder [Unknown]
  - Drug ineffective [Unknown]
  - Headache [Unknown]
